FAERS Safety Report 24798565 (Version 2)
Quarter: 2025Q3

REPORT INFORMATION
  Report Type: Spontaneous
  Country: EU (occurrence: EU)
  Receive Date: 20250102
  Receipt Date: 20250730
  Transmission Date: 20251020
  Serious: Yes (Disabling, Other)
  Sender: ALKEM
  Company Number: EU-ALKEM LABORATORIES LIMITED-FR-ALKEM-2024-23259

PATIENT
  Sex: Male

DRUGS (4)
  1. DRONABINOL [Suspect]
     Active Substance: DRONABINOL
     Indication: Central pain syndrome
     Dosage: 5 MILLIGRAM, BID (IN 2 INTAKES)
     Route: 065
     Dates: start: 20240705
  2. DRONABINOL [Suspect]
     Active Substance: DRONABINOL
     Dosage: 7.5 MILLIGRAM, BID (SOFT CAPSULE)
     Route: 065
     Dates: start: 20241023
  3. DRONABINOL [Suspect]
     Active Substance: DRONABINOL
     Dosage: 5 MILLIGRAM, TID (TID
     Route: 065
  4. DRONABINOL [Suspect]
     Active Substance: DRONABINOL
     Dosage: 2.5 MILLIGRAM, BID
     Route: 065
     Dates: start: 20240605

REACTIONS (5)
  - Feeling drunk [Recovered/Resolved]
  - Asthenia [Recovered/Resolved]
  - Drug ineffective [Unknown]
  - Off label use [Unknown]
  - Product prescribing issue [Unknown]
